FAERS Safety Report 18852907 (Version 1)
Quarter: 2021Q1

REPORT INFORMATION
  Report Type: Report from Study
  Country: IN (occurrence: IN)
  Receive Date: 20210205
  Receipt Date: 20210205
  Transmission Date: 20210420
  Serious: Yes (Other)
  Sender: FDA-Public Use
  Company Number: NVSC2021IN023598

PATIENT
  Sex: Male

DRUGS (4)
  1. FOLITRAX [Concomitant]
     Active Substance: METHOTREXATE SODIUM
     Indication: HYPERTENSION
     Dosage: 15 MG, QW
     Route: 065
  2. SCAPHO [Suspect]
     Active Substance: SECUKINUMAB
     Dosage: 150 MG, QW
     Route: 058
     Dates: start: 20201223
  3. SCAPHO [Suspect]
     Active Substance: SECUKINUMAB
     Indication: ANKYLOSING SPONDYLITIS
     Dosage: UNK UNK, QW
     Route: 058
  4. TELPRES [Concomitant]
     Indication: HYPERTENSION
     Dosage: 0.5 DF, QD (50 MG) (AFTER HAVING BREAKFAST))
     Route: 065

REACTIONS (2)
  - Blood pressure increased [Unknown]
  - Heart rate increased [Unknown]
